FAERS Safety Report 6522407-9 (Version None)
Quarter: 2009Q4

REPORT INFORMATION
  Report Type: 
  Country: None (occurrence: None)
  Receive Date: 20091230
  Receipt Date: 20091217
  Transmission Date: 20100525
  Serious: Yes (Hospitalization)
  Sender: FDA-Public Use
  Company Number: DE-ROCHE-672989

PATIENT
  Sex: Male
  Weight: 77 kg

DRUGS (7)
  1. MYCOPHENOLATE MOFETIL [Suspect]
     Route: 048
     Dates: start: 20080713
  2. CP-690550 [Suspect]
     Indication: KIDNEY TRANSPLANT REJECTION
     Route: 048
     Dates: start: 20080703
  3. URBASON [Suspect]
     Indication: DRUG USE FOR UNKNOWN INDICATION
     Route: 065
     Dates: start: 20080713
  4. ATACAND [Concomitant]
     Dates: start: 20080713
  5. BACTRIM [Concomitant]
     Dates: start: 20080713
  6. PANTOPRAZOLE [Concomitant]
     Dates: start: 20080713
  7. VALCYTE [Concomitant]
     Dates: start: 20080713

REACTIONS (1)
  - OSTEOMYELITIS [None]
